FAERS Safety Report 7515788-0 (Version None)
Quarter: 2011Q2

REPORT INFORMATION
  Report Type: 
  Country: None (occurrence: None)
  Receive Date: 20110601
  Receipt Date: 20110523
  Transmission Date: 20111010
  Serious: No
  Sender: FDA-Public Use
  Company Number: US-PFIZER INC-2011106589

PATIENT
  Sex: Female
  Weight: 91 kg

DRUGS (6)
  1. XALATAN [Suspect]
     Indication: GLAUCOMA
     Dosage: ONE DROP, EACH EYE, UNK
     Route: 047
     Dates: start: 20091001
  2. AZOPT [Concomitant]
     Dosage: UNK, 2X/DAY
  3. GLYBURIDE [Concomitant]
     Indication: DIABETES MELLITUS
     Dosage: 2.5 MG, 2X/DAY
  4. SYNTHROID [Concomitant]
     Indication: HYPERTHYROIDISM
     Dosage: 125 MG, UNK
  5. TIMOLOL [Concomitant]
     Dosage: UNK
  6. NEXIUM [Concomitant]
     Indication: GASTROOESOPHAGEAL REFLUX DISEASE
     Dosage: 40 MG, DAILY

REACTIONS (2)
  - EYELASH THICKENING [None]
  - GROWTH OF EYELASHES [None]
